FAERS Safety Report 15313449 (Version 1)
Quarter: 2018Q3

REPORT INFORMATION
  Report Type: Spontaneous
  Country: ES (occurrence: ES)
  Receive Date: 20180824
  Receipt Date: 20180824
  Transmission Date: 20181010
  Serious: Yes (Other)
  Sender: FDA-Public Use
  Company Number: ES-ASTRAZENECA-2018SF06056

PATIENT
  Age: 87 Year
  Sex: Female

DRUGS (1)
  1. QUETIAPINE. [Suspect]
     Active Substance: QUETIAPINE
     Indication: AGGRESSION
     Dosage: 1 TABLET (DUE TO RESTLESSNESS) (IF NEEDED) BEFORE BEDTIME (23H), ON 24?JUL?2018 1 TABLET (IF INT...
     Route: 048
     Dates: start: 20180716, end: 20180726

REACTIONS (2)
  - Paradoxical drug reaction [Unknown]
  - Sedation complication [Unknown]

NARRATIVE: CASE EVENT DATE: 20180716
